FAERS Safety Report 9426929 (Version 3)
Quarter: 2013Q4

REPORT INFORMATION
  Report Type: Spontaneous
  Country: US (occurrence: US)
  Receive Date: 20130730
  Receipt Date: 20131025
  Transmission Date: 20140711
  Serious: No
  Sender: FDA-Public Use
  Company Number: US-009507513-1307USA015994

PATIENT
  Sex: Male

DRUGS (1)
  1. COPPERTONE WATER BABIES LOTION SPF-50 [Suspect]
     Indication: PRODUCT USED FOR UNKNOWN INDICATION
     Dosage: UNK, UNKNOWN
     Route: 061

REACTIONS (2)
  - Sunburn [Unknown]
  - Product label confusion [Unknown]
